FAERS Safety Report 11957755 (Version 2)
Quarter: 2016Q1

REPORT INFORMATION
  Report Type: Spontaneous
  Country: US (occurrence: US)
  Receive Date: 20160126
  Receipt Date: 20160307
  Transmission Date: 20160526
  Serious: Yes (Hospitalization)
  Sender: FDA-Public Use
  Company Number: US-BIOGEN-2016BI00179307

PATIENT
  Sex: Male

DRUGS (3)
  1. TECFIDERA [Suspect]
     Active Substance: DIMETHYL FUMARATE
     Indication: MULTIPLE SCLEROSIS
     Route: 048
     Dates: start: 20131003
  2. TECFIDERA [Suspect]
     Active Substance: DIMETHYL FUMARATE
     Dosage: MAINTENANCE DOSE
     Route: 048
     Dates: end: 201312
  3. TECFIDERA [Suspect]
     Active Substance: DIMETHYL FUMARATE
     Dosage: STARTING DOSE
     Route: 048
     Dates: start: 201303, end: 201304

REACTIONS (11)
  - Adverse reaction [Unknown]
  - Muscular weakness [Not Recovered/Not Resolved]
  - Clumsiness [Not Recovered/Not Resolved]
  - Multiple sclerosis [Recovered/Resolved]
  - Disorientation [Not Recovered/Not Resolved]
  - Pain [Not Recovered/Not Resolved]
  - Disability [Not Recovered/Not Resolved]
  - Visual impairment [Not Recovered/Not Resolved]
  - Thinking abnormal [Not Recovered/Not Resolved]
  - Memory impairment [Not Recovered/Not Resolved]
  - Spinal pain [Not Recovered/Not Resolved]
